FAERS Safety Report 5480035-0 (Version None)
Quarter: 2007Q4

REPORT INFORMATION
  Report Type: 
  Country: None (occurrence: None)
  Receive Date: 20071008
  Receipt Date: 20070926
  Transmission Date: 20080405
  Serious: Yes (Other)
  Sender: FDA-Public Use
  Company Number: US-PFIZER INC-2007081117

PATIENT
  Sex: Female
  Weight: 99.8 kg

DRUGS (16)
  1. ZOLOFT [Suspect]
     Indication: POST-TRAUMATIC STRESS DISORDER
     Route: 048
  2. ZOLOFT [Suspect]
     Indication: PANIC ATTACK
  3. ZOLOFT [Suspect]
     Indication: AGORAPHOBIA
  4. GABITRIL [Suspect]
     Indication: SLEEP DISORDER
     Route: 048
     Dates: start: 20060816, end: 20061204
  5. GABITRIL [Suspect]
     Indication: PANIC ATTACK
  6. GABITRIL [Suspect]
     Indication: AGORAPHOBIA
  7. GABITRIL [Suspect]
     Indication: POST-TRAUMATIC STRESS DISORDER
  8. GABITRIL [Suspect]
     Indication: ANXIETY
  9. CYMBALTA [Suspect]
     Indication: NEURALGIA
     Route: 048
     Dates: start: 20060101
  10. KLONOPIN [Suspect]
     Indication: POST-TRAUMATIC STRESS DISORDER
  11. KLONOPIN [Suspect]
     Indication: PANIC ATTACK
  12. KLONOPIN [Suspect]
     Indication: AGORAPHOBIA
  13. LIPITOR [Concomitant]
  14. DILTIAZEM [Concomitant]
  15. AMBIEN [Concomitant]
  16. NEURONTIN [Concomitant]
     Dates: start: 20060801, end: 20070115

REACTIONS (4)
  - ASTHMA [None]
  - CONVULSION [None]
  - PANIC ATTACK [None]
  - PNEUMONIA [None]
